FAERS Safety Report 7710066-9 (Version None)
Quarter: 2011Q3

REPORT INFORMATION
  Report Type: 
  Country: None (occurrence: None)
  Receive Date: 20110825
  Receipt Date: 20110817
  Transmission Date: 20111222
  Serious: Yes (Death, Hospitalization, Other)
  Sender: FDA-Public Use
  Company Number: PHHY2011DE75381

PATIENT
  Age: 56 Year
  Sex: Female

DRUGS (4)
  1. VITAMIN B-12 [Concomitant]
     Indication: NON-SMALL CELL LUNG CANCER
  2. CARBOPLATIN [Suspect]
     Indication: NON-SMALL CELL LUNG CANCER
     Dosage: 500 MG/M2, UNK
     Route: 042
  3. PEMETREXED [Concomitant]
     Indication: NON-SMALL CELL LUNG CANCER
     Dosage: 500 MG/M2, UNK
  4. FOLIC ACID [Concomitant]
     Indication: NON-SMALL CELL LUNG CANCER

REACTIONS (21)
  - BODY TEMPERATURE INCREASED [None]
  - INFUSION SITE INFLAMMATION [None]
  - PSEUDOMONAS INFECTION [None]
  - PETECHIAE [None]
  - BLOOD PRESSURE DECREASED [None]
  - ANAEMIA [None]
  - THROMBOCYTOPENIA [None]
  - WOUND [None]
  - BONE PAIN [None]
  - DEATH [None]
  - HEART RATE INCREASED [None]
  - PAIN IN EXTREMITY [None]
  - NAUSEA [None]
  - ASPERGILLOSIS [None]
  - ENTEROCOLITIS [None]
  - ULCER [None]
  - GASTRITIS [None]
  - GENERAL PHYSICAL CONDITION ABNORMAL [None]
  - SEPSIS [None]
  - NEUTROPENIA [None]
  - INFUSION SITE PAIN [None]
